FAERS Safety Report 4510745-0 (Version None)
Quarter: 2004Q4

REPORT INFORMATION
  Report Type: 
  Country: None (occurrence: None)
  Receive Date: 20041025
  Receipt Date: 20040109
  Transmission Date: 20050328
  Serious: Yes (Other)
  Sender: FDA-Public Use
  Company Number: NSADSS2002029205

PATIENT
  Age: 53 Year
  Sex: Female

DRUGS (6)
  1. REMICADE [Suspect]
     Indication: OSTEOPOROSIS
     Dosage: SEE IMAGE
     Route: 041
     Dates: start: 20010101, end: 20010101
  2. REMICADE [Suspect]
     Indication: PSORIATIC ARTHROPATHY
     Dosage: SEE IMAGE
     Route: 041
     Dates: start: 20010101, end: 20010101
  3. REMICADE [Suspect]
     Indication: OSTEOPOROSIS
     Dosage: SEE IMAGE
     Route: 041
     Dates: start: 20011001, end: 20011001
  4. REMICADE [Suspect]
     Indication: PSORIATIC ARTHROPATHY
     Dosage: SEE IMAGE
     Route: 041
     Dates: start: 20011001, end: 20011001
  5. REMICADE [Suspect]
     Indication: OSTEOPOROSIS
     Dosage: SEE IMAGE
     Route: 041
     Dates: start: 20020401, end: 20020401
  6. REMICADE [Suspect]
     Indication: PSORIATIC ARTHROPATHY
     Dosage: SEE IMAGE
     Route: 041
     Dates: start: 20020401, end: 20020401

REACTIONS (1)
  - OPTIC NEURITIS [None]
